FAERS Safety Report 24294010 (Version 1)
Quarter: 2024Q3

REPORT INFORMATION
  Report Type: Spontaneous
  Country: US (occurrence: US)
  Receive Date: 20240906
  Receipt Date: 20240906
  Transmission Date: 20241017
  Serious: No
  Sender: DOMPE FARMACEUTICI
  Company Number: US-FARMAPROD-202403-1026

PATIENT
  Sex: Female

DRUGS (8)
  1. OXERVATE [Suspect]
     Active Substance: CENEGERMIN-BKBJ
     Indication: Neurotrophic keratopathy
     Route: 047
     Dates: start: 20240318, end: 20240507
  2. OXERVATE [Suspect]
     Active Substance: CENEGERMIN-BKBJ
  3. OXERVATE [Suspect]
     Active Substance: CENEGERMIN-BKBJ
  4. XANAX [Concomitant]
     Active Substance: ALPRAZOLAM
  5. MINOXIDIL [Concomitant]
     Active Substance: MINOXIDIL
  6. PREDNISOLONE ACETATE [Concomitant]
     Active Substance: PREDNISOLONE ACETATE
  7. TYRVAYA [Concomitant]
     Active Substance: VARENICLINE TARTRATE
     Dosage: 0.03 MG/SPRAY
  8. GABAPENTIN [Concomitant]
     Active Substance: GABAPENTIN

REACTIONS (6)
  - Eye pain [Unknown]
  - Product dose omission issue [Unknown]
  - Eye irritation [Not Recovered/Not Resolved]
  - Vision blurred [Unknown]
  - Foreign body in eye [Unknown]
  - Eye irritation [Recovering/Resolving]
